FAERS Safety Report 20010205 (Version 1)
Quarter: 2021Q4

REPORT INFORMATION
  Report Type: Spontaneous
  Country: US (occurrence: US)
  Receive Date: 20211028
  Receipt Date: 20211028
  Transmission Date: 20220304
  Serious: No
  Sender: FDA-Public Use
  Company Number: 2021A775019

PATIENT
  Sex: Female
  Weight: 84.8 kg

DRUGS (2)
  1. FARXIGA [Suspect]
     Active Substance: DAPAGLIFLOZIN PROPANEDIOL
     Indication: Type 2 diabetes mellitus
     Route: 048
     Dates: start: 2021, end: 2021
  2. PROBIOTIC/PREBIOTIC [Concomitant]

REACTIONS (4)
  - Dysuria [Recovered/Resolved]
  - Haematuria [Recovering/Resolving]
  - Urinary tract infection [Recovering/Resolving]
  - Intentional product misuse [Unknown]
